FAERS Safety Report 5333355-4 (Version None)
Quarter: 2007Q2

REPORT INFORMATION
  Report Type: 
  Country: None (occurrence: None)
  Receive Date: 20070524
  Receipt Date: 20070514
  Transmission Date: 20071010
  Serious: Yes (Hospitalization)
  Sender: FDA-Public Use
  Company Number: FR-AVENTIS-200611662FR

PATIENT
  Age: 72 Year
  Sex: Female

DRUGS (15)
  1. ARAVA [Suspect]
     Route: 048
     Dates: start: 20040220, end: 20050223
  2. ARAVA [Suspect]
     Route: 048
     Dates: start: 20050315, end: 20060410
  3. LANTUS [Concomitant]
     Indication: DIABETES MELLITUS
  4. FONZYLANE [Concomitant]
     Route: 048
  5. STILNOX                            /00914901/ [Concomitant]
     Route: 048
  6. OSTRAM                             /00183801/ [Concomitant]
     Route: 048
  7. OMEPRAZOLE [Concomitant]
     Route: 048
  8. LIPANTHYL [Concomitant]
     Route: 048
  9. FLECAINIDE ACETATE [Concomitant]
     Route: 048
  10. KARDEGIC                           /00002703/ [Concomitant]
     Route: 048
  11. CORTANCYL [Concomitant]
     Route: 048
  12. CORTANCYL [Concomitant]
     Route: 048
  13. DURAGESIC-100 [Concomitant]
     Route: 048
  14. ACTISKENAN [Concomitant]
     Route: 048
  15. AMARYL [Concomitant]
     Route: 048

REACTIONS (1)
  - SKIN NECROSIS [None]
